FAERS Safety Report 16121661 (Version 2)
Quarter: 2019Q2

REPORT INFORMATION
  Report Type: Report from Study
  Country: DE (occurrence: DE)
  Receive Date: 20190327
  Receipt Date: 20190424
  Transmission Date: 20190711
  Serious: Yes (Other)
  Sender: FDA-Public Use
  Company Number: DE-ACCORD-114340

PATIENT
  Age: 44 Year
  Sex: Female
  Weight: 70 kg

DRUGS (7)
  1. RAMIPRIL. [Suspect]
     Active Substance: RAMIPRIL
     Indication: PRODUCT USED FOR UNKNOWN INDICATION
     Dates: start: 2001
  2. PANTOPRAZOLE [Suspect]
     Active Substance: PANTOPRAZOLE
     Indication: PRODUCT USED FOR UNKNOWN INDICATION
  3. ENOXAPARIN/ENOXAPARIN SODIUM [Suspect]
     Active Substance: ENOXAPARIN\ENOXAPARIN SODIUM
     Indication: PRODUCT USED FOR UNKNOWN INDICATION
  4. CYMBALTA [Suspect]
     Active Substance: DULOXETINE HYDROCHLORIDE
     Indication: PRODUCT USED FOR UNKNOWN INDICATION
     Dates: start: 2001
  5. L-THYROXIN [Suspect]
     Active Substance: LEVOTHYROXINE SODIUM
     Indication: PRODUCT USED FOR UNKNOWN INDICATION
     Dates: start: 2001
  6. LAMUNA [Suspect]
     Active Substance: DESOGESTREL\ETHINYL ESTRADIOL
     Indication: HORMONAL CONTRACEPTION
     Dosage: 21X DSG 150MICROG/EE 30MICROG
     Route: 048
  7. BISOPROLOL [Suspect]
     Active Substance: BISOPROLOL
     Indication: PRODUCT USED FOR UNKNOWN INDICATION

REACTIONS (6)
  - Discomfort [Unknown]
  - Mobility decreased [Unknown]
  - Deep vein thrombosis [Unknown]
  - Tension [Unknown]
  - Muscular weakness [Unknown]
  - Ligament injury [Unknown]

NARRATIVE: CASE EVENT DATE: 20180721
